FAERS Safety Report 5750487-7 (Version None)
Quarter: 2008Q2

REPORT INFORMATION
  Report Type: 
  Country: None (occurrence: None)
  Receive Date: 20080528
  Receipt Date: 20070925
  Transmission Date: 20081010
  Serious: No
  Sender: FDA-Public Use
  Company Number: US-KINGPHARMUSA00001-K200701249

PATIENT

DRUGS (11)
  1. AVINZA [Suspect]
     Indication: NERVE INJURY
     Dosage: 120 MG, QD
     Route: 048
     Dates: start: 20040101, end: 20070920
  2. LORCET  /00607101/ [Concomitant]
     Indication: BREAKTHROUGH PAIN
     Dosage: 10/650, QID
  3. LISINOPRIL [Concomitant]
     Indication: HYPERTENSION
  4. TOPROL-XL [Concomitant]
     Indication: HYPERTENSION
  5. LORAZEPAM [Concomitant]
     Dosage: 4.5 MG, QD
  6. PAXIL [Concomitant]
     Dosage: 60 MG, QD
     Route: 048
  7. NEXIUM [Concomitant]
     Dosage: 40 MG, QD
     Route: 048
  8. LOVASTATIN [Concomitant]
     Dosage: 80 MG, QD
     Route: 048
  9. TRICOR /00499301/ [Concomitant]
     Dosage: 145 MG, QD
  10. FOLIC ACID [Concomitant]
     Dosage: 1 MG, 6 TIMES A WEEK
     Route: 048
  11. METHOTREXATE [Concomitant]
     Dosage: 20 MG, ONCE WEEKLY
     Route: 048

REACTIONS (8)
  - ABDOMINAL PAIN UPPER [None]
  - DIARRHOEA [None]
  - DISCOMFORT [None]
  - DYSKINESIA [None]
  - FAECES DISCOLOURED [None]
  - MYALGIA [None]
  - RESTLESSNESS [None]
  - WITHDRAWAL SYNDROME [None]
